FAERS Safety Report 8609120-9 (Version None)
Quarter: 2012Q3

REPORT INFORMATION
  Report Type: 
  Country: None (occurrence: None)
  Receive Date: 20120821
  Receipt Date: 20120806
  Transmission Date: 20120928
  Serious: Yes (Other)
  Sender: FDA-Public Use
  Company Number: IT-WATSON-2012-14424

PATIENT
  Age: 8 Year
  Sex: Male
  Weight: 32 kg

DRUGS (4)
  1. PREDNISONE TAB [Suspect]
     Dosage: 1.25 MG/KG, EVERY OTHER DAY
  2. PREDNISONE TAB [Suspect]
     Indication: DUCHENNE MUSCULAR DYSTROPHY
     Dosage: 0.75 MG/KG, DAILY, THEN ALTERNATE DAYS
     Route: 065
  3. DEFLAZACORT [Suspect]
     Dosage: 0.7 - 1.0 MG/KG QOD
     Route: 065
  4. DEFLAZACORT [Suspect]
     Indication: DUCHENNE MUSCULAR DYSTROPHY
     Dosage: 1.5 MG/KG, QOD
     Route: 065

REACTIONS (4)
  - FAILURE TO THRIVE [None]
  - BONE DEVELOPMENT ABNORMAL [None]
  - WEIGHT INCREASED [None]
  - DELAYED PUBERTY [None]
